FAERS Safety Report 8570277 (Version 3)
Quarter: 2012Q4

REPORT INFORMATION
  Report Type: 
  Country: US (occurrence: US)
  Receive Date: 20120521
  Receipt Date: 20120925
  Transmission Date: 20130627
  Serious: Yes (Hospitalization, Other)
  Sender: FDA-Public Use
  Company Number: US-PFIZER INC-2012120524

PATIENT
  Age: 49 Year
  Sex: Male

DRUGS (13)
  1. SUTENT [Suspect]
     Indication: COLON CANCER
     Dosage: 50 mg, 1x/day
     Route: 048
  2. SUTENT [Suspect]
     Indication: COLON CANCER
  3. ADVIL [Concomitant]
     Dosage: UNK
  4. ALPRAZOLAM [Concomitant]
     Dosage: UNK
  5. CHLORDIAZEPOXIDE [Concomitant]
     Dosage: UNK
  6. DIAZEPAM [Concomitant]
     Dosage: UNK
  7. OXYCODONE [Concomitant]
     Dosage: UNK
  8. PROMETHAZINE [Concomitant]
     Dosage: UNK
  9. CLARITIN [Concomitant]
     Dosage: UNK
  10. HYDROMORPHONE [Concomitant]
     Dosage: UNK
  11. TYLENOL COLD AND FLU [Concomitant]
     Dosage: UNK
  12. ZANTAC [Concomitant]
     Dosage: UNK
  13. MOBIC [Concomitant]
     Dosage: UNK

REACTIONS (11)
  - Cardiac failure [Unknown]
  - Hepatic failure [Unknown]
  - Renal failure [Unknown]
  - Infection [Unknown]
  - Localised infection [Unknown]
  - Thrombosis [Unknown]
  - Neuropathy peripheral [Unknown]
  - Back pain [Unknown]
  - Pain [Unknown]
  - Nausea [Unknown]
  - Decreased appetite [Unknown]
